FAERS Safety Report 17962061 (Version 1)
Quarter: 2020Q2

REPORT INFORMATION
  Report Type: Spontaneous
  Country: US (occurrence: US)
  Receive Date: 20200630
  Receipt Date: 20200630
  Transmission Date: 20200714
  Serious: No
  Sender: FDA-Public Use
  Company Number: US-PFIZER INC-2020249153

PATIENT
  Age: 53 Year
  Sex: Male
  Weight: 72.57 kg

DRUGS (2)
  1. IBUPROFEN. [Suspect]
     Active Substance: IBUPROFEN
     Indication: PERIPHERAL SWELLING
  2. IBUPROFEN. [Suspect]
     Active Substance: IBUPROFEN
     Indication: JOINT SWELLING
     Dosage: UNK

REACTIONS (2)
  - Therapeutic product effect incomplete [Unknown]
  - Intentional product misuse [Unknown]
